FAERS Safety Report 5937676-3 (Version None)
Quarter: 2008Q4

REPORT INFORMATION
  Report Type: 
  Country: None (occurrence: None)
  Receive Date: 20081031
  Receipt Date: 20080425
  Transmission Date: 20090506
  Serious: No
  Sender: FDA-Public Use
  Company Number: US-BAYER-200812230BCC

PATIENT
  Age: 2 Year
  Sex: Male
  Weight: 16 kg

DRUGS (2)
  1. ALEVE [Suspect]
     Route: 048
     Dates: start: 20080425, end: 20080425
  2. FLUORIDE [Concomitant]

REACTIONS (1)
  - NO ADVERSE EVENT [None]
